FAERS Safety Report 9902311 (Version 2)
Quarter: 2014Q1

REPORT INFORMATION
  Report Type: Spontaneous
  Country: US (occurrence: US)
  Receive Date: 20140217
  Receipt Date: 20140217
  Transmission Date: 20141002
  Serious: No
  Sender: FDA-Public Use
  Company Number: US-GILEAD-2011-0046480

PATIENT
  Age: 52 Year
  Sex: Female
  Weight: 88.53 kg

DRUGS (17)
  1. LETAIRIS [Suspect]
     Indication: PULMONARY HYPERTENSION
     Dosage: 5 MG, UNK
     Route: 048
     Dates: start: 20111011
  2. ALBUTEROL SULFATE [Concomitant]
  3. AMILORIDE HYDROCHLORIDE [Concomitant]
  4. ASPIRIN [Concomitant]
  5. CIALIS [Concomitant]
  6. COMBIVENT [Concomitant]
  7. DULCOLAX                           /00064401/ [Concomitant]
  8. FENTANYL [Concomitant]
  9. FLUOXETINE HYDROCHLORIDE [Concomitant]
  10. HUMULIN 70/30 [Concomitant]
  11. HYDROCHLOROTHIAZIDE [Concomitant]
  12. LASIX                              /00032601/ [Concomitant]
  13. LISINOPRIL [Concomitant]
  14. MORPHINE SULFATE [Concomitant]
  15. PLAVIX                             /01220701/ [Concomitant]
  16. PROTONIX [Concomitant]
  17. SINGULAIR [Concomitant]

REACTIONS (2)
  - Fluid retention [Unknown]
  - Headache [Unknown]
